FAERS Safety Report 16332710 (Version 1)
Quarter: 2019Q2

REPORT INFORMATION
  Report Type: Spontaneous
  Country: US (occurrence: US)
  Receive Date: 20190520
  Receipt Date: 20190520
  Transmission Date: 20190711
  Serious: No
  Sender: FDA-Public Use
  Company Number: US-TARO-2019TAR00149

PATIENT
  Sex: Male

DRUGS (1)
  1. CARBAMAZEPINE EXTENDED RELEASE TABLETS USP 400MG [Suspect]
     Active Substance: CARBAMAZEPINE
     Indication: EPILEPSY
     Dosage: 1200 MG, 2X/DAY

REACTIONS (3)
  - Gait disturbance [Unknown]
  - Dizziness [Unknown]
  - Prescribed overdose [Not Recovered/Not Resolved]
